FAERS Safety Report 8271294-X (Version None)
Quarter: 2012Q2

REPORT INFORMATION
  Report Type: 
  Country: None (occurrence: None)
  Receive Date: 20120308
  Receipt Date: 20120207
  Transmission Date: 20120825
  Serious: Yes (Hospitalization)
  Sender: FDA-Public Use
  Company Number: PHEH2011US012181

PATIENT
  Sex: Male
  Weight: 113.4 kg

DRUGS (2)
  1. LATUDA [Suspect]
  2. FANAPT [Suspect]
     Indication: SCHIZOPHRENIA
     Dosage: 6 MG, QD : 8 MG, QD

REACTIONS (2)
  - WEIGHT INCREASED [None]
  - DRUG INEFFECTIVE [None]
